FAERS Safety Report 13331554 (Version 1)
Quarter: 2017Q1

REPORT INFORMATION
  Report Type: Spontaneous
  Country: US (occurrence: US)
  Receive Date: 20170314
  Receipt Date: 20170314
  Transmission Date: 20170428
  Serious: No
  Sender: FDA-Public Use
  Company Number: US-JNJFOC-20170100371

PATIENT
  Age: 79 Year
  Sex: Female

DRUGS (1)
  1. TYLENOL COLD SORE THROAT EXTRA STRENGTH [Suspect]
     Active Substance: ACETAMINOPHEN
     Indication: NASOPHARYNGITIS
     Dosage: 1 TEASPOON (TSP) - 1 TABLESPOON (TBSP)
     Route: 048
     Dates: start: 20161230

REACTIONS (2)
  - Incorrect dose administered [Unknown]
  - Product packaging issue [Unknown]

NARRATIVE: CASE EVENT DATE: 20161230
